FAERS Safety Report 18504804 (Version 1)
Quarter: 2020Q4

REPORT INFORMATION
  Report Type: Spontaneous
  Country: US (occurrence: US)
  Receive Date: 20201115
  Receipt Date: 20201115
  Transmission Date: 20210114
  Serious: Yes (Hospitalization)
  Sender: FDA-Public Use
  Company Number: US-HORIZON-2020HZN01092

PATIENT
  Age: 5 Month
  Sex: Male

DRUGS (6)
  1. CITRULLINE [Concomitant]
     Active Substance: CITRULLINE
  2. RAVICTI [Suspect]
     Active Substance: GLYCEROL PHENYLBUTYRATE
     Indication: UREA CYCLE DISORDER
     Dosage: 1.5ML BY MOUTH FOUR TIMES A DAY. TOTAL DAILY DOSE OF 6 ML. ; TIME INTERVAL:
     Route: 050
  3. PHENOBARBITAL. [Concomitant]
     Active Substance: PHENOBARBITAL
  4. MULTIVITAMIN-IRON-FLUORIDE [Concomitant]
  5. DILANTIN [Concomitant]
     Active Substance: PHENYTOIN
  6. PRILOSEC [Concomitant]
     Active Substance: OMEPRAZOLE MAGNESIUM

REACTIONS (2)
  - Vascular device infection [Unknown]
  - Seizure [Unknown]
